FAERS Safety Report 4886482-X (Version None)
Quarter: 2006Q1

REPORT INFORMATION
  Report Type: 
  Country: None (occurrence: None)
  Receive Date: 20060120
  Receipt Date: 20051005
  Transmission Date: 20060701
  Serious: Yes (Hospitalization, Disabling)
  Sender: FDA-Public Use
  Company Number: US-MERCK-0510USA04643

PATIENT
  Age: 45 Year
  Sex: Female
  Weight: 73 kg

DRUGS (4)
  1. VIOXX [Suspect]
     Indication: ARTHRITIS
     Route: 048
     Dates: start: 20000901
  2. VASOTEC [Concomitant]
     Route: 065
  3. CARTIA (ASPIRIN) [Concomitant]
     Route: 065
  4. [THERAPY UNSPECIFIED] [Concomitant]
     Route: 065

REACTIONS (12)
  - ANTITHROMBIN III DEFICIENCY [None]
  - ARTERIAL THROMBOSIS [None]
  - ARTHROPATHY [None]
  - BLOOD PRESSURE INADEQUATELY CONTROLLED [None]
  - CARDIOVASCULAR DISORDER [None]
  - CEREBRAL INFARCTION [None]
  - CEREBROVASCULAR ACCIDENT [None]
  - DEPRESSION [None]
  - NEUROMA [None]
  - PROTEIN S DEFICIENCY [None]
  - SIMPLE PARTIAL SEIZURES [None]
  - VASCULITIS [None]
